FAERS Safety Report 8025603-7 (Version None)
Quarter: 2012Q1

REPORT INFORMATION
  Report Type: 
  Country: None (occurrence: None)
  Receive Date: 20120105
  Receipt Date: 20111230
  Transmission Date: 20120608
  Serious: Yes (Death, Life-Threatening, Hospitalization)
  Sender: FDA-Public Use
  Company Number: FR-BAYER-2011-005790

PATIENT
  Age: 36 Year
  Sex: Male

DRUGS (26)
  1. AMITRIPTYLINE HCL [Suspect]
     Dosage: 1 DF, QD
     Route: 048
     Dates: start: 20091110, end: 20091111
  2. POLARAMINE [Suspect]
     Dosage: 1 DF, QD
     Route: 042
     Dates: start: 20091113, end: 20091113
  3. NEURONTIN [Suspect]
     Dosage: 1 DF, TID
     Route: 048
     Dates: start: 20091109, end: 20091113
  4. NEUPOGEN [Concomitant]
     Dosage: UNK
     Dates: start: 20091111, end: 20091113
  5. AMITRIPTYLINE HCL [Suspect]
     Dosage: 1 DF, BID
     Route: 048
     Dates: start: 20091109, end: 20091111
  6. TRAMADOL HCL [Suspect]
     Indication: PAIN
     Dosage: 50 MG, TID
     Route: 048
     Dates: start: 20091113, end: 20091113
  7. PRIMPERAN TAB [Concomitant]
     Dosage: UNK
     Dates: start: 20091110, end: 20091113
  8. FLUCONAZOLE [Suspect]
     Dosage: 50 MG, QD
     Route: 048
     Dates: start: 20091101
  9. AUGMENTIN '125' [Suspect]
     Dosage: UNK
     Dates: start: 20091117, end: 20091121
  10. OXYCONTIN [Concomitant]
     Dosage: UNK
     Dates: start: 20091109, end: 20091113
  11. LEXOMIL [Concomitant]
     Dosage: UNK
     Dates: start: 20091109, end: 20091113
  12. CIPROFLOXACIN [Suspect]
     Dosage: 500 MG, QD
     Route: 048
     Dates: start: 20091101
  13. ETOPOSIDE [Suspect]
     Indication: EXTRAGONADAL PRIMARY GERM CELL TUMOUR MIXED STAGE I
     Dosage: 770 MG, QD
     Route: 042
     Dates: start: 20101109, end: 20101111
  14. EMEND [Suspect]
     Dosage: 1 DF, QD
     Route: 048
     Dates: start: 20091110, end: 20091113
  15. HALDOL [Suspect]
     Indication: NAUSEA
     Dosage: 2 MG, UNK
     Route: 048
     Dates: start: 20091112, end: 20091113
  16. BIONOLYTE G 5 [Concomitant]
     Dosage: UNK
     Dates: start: 20091109, end: 20091113
  17. ONDANSETRON [Concomitant]
     Dosage: UNK
     Dates: start: 20091111
  18. NEUPOGEN [Concomitant]
     Dosage: UNK
     Dates: start: 20091111, end: 20091111
  19. HYDROCORTISONE [Concomitant]
     Dosage: UNK
     Dates: start: 20091113, end: 20091113
  20. TRAMADOL HCL [Suspect]
     Indication: PAIN
     Dosage: UNK UNK, TID
     Route: 048
     Dates: start: 20091113, end: 20091113
  21. ORAMORPH SR [Concomitant]
     Dosage: UNK
     Dates: start: 20091110, end: 20091113
  22. LIDOCAINE [Concomitant]
     Dosage: UNK
     Dates: start: 20091110, end: 20091111
  23. EMEND [Suspect]
     Dosage: 125 MG, QD
     Route: 048
     Dates: start: 20091109, end: 20091111
  24. CARBOPLATIN [Suspect]
     Indication: EXTRAGONADAL PRIMARY GERM CELL TUMOUR MIXED STAGE I
     Dosage: 1300 MG, QD
     Route: 042
     Dates: start: 20091109, end: 20091111
  25. ACETAMINOPHEN [Concomitant]
     Dosage: UNK
     Dates: start: 20091110, end: 20091113
  26. ZOFRAN [Concomitant]
     Dosage: UNK
     Dates: start: 20091110, end: 20091113

REACTIONS (4)
  - ILEITIS [None]
  - INTESTINAL OBSTRUCTION [None]
  - FEBRILE BONE MARROW APLASIA [None]
  - JEJUNITIS [None]
